FAERS Safety Report 25189177 (Version 1)
Quarter: 2025Q2

REPORT INFORMATION
  Report Type: Spontaneous
  Country: ID (occurrence: ID)
  Receive Date: 20250411
  Receipt Date: 20250411
  Transmission Date: 20250717
  Serious: Yes (Life-Threatening, Hospitalization, Other)
  Sender: STRIDES
  Company Number: ID-STRIDES ARCOLAB LIMITED-2025SP004708

PATIENT
  Age: 24 Year
  Sex: Female

DRUGS (7)
  1. METHYLDOPA [Suspect]
     Active Substance: METHYLDOPA
     Indication: Eclampsia
     Route: 065
  2. METHYLDOPA [Suspect]
     Active Substance: METHYLDOPA
     Indication: Hypertension
  3. MAGNESIUM SULFATE [Suspect]
     Active Substance: MAGNESIUM SULFATE
     Indication: Hypertension
     Route: 065
  4. MAGNESIUM SULFATE [Suspect]
     Active Substance: MAGNESIUM SULFATE
     Indication: Eclampsia
  5. NIFEDIPINE [Suspect]
     Active Substance: NIFEDIPINE
     Indication: Eclampsia
     Route: 065
  6. NIFEDIPINE [Suspect]
     Active Substance: NIFEDIPINE
     Indication: Hypertension
  7. DEXAMETHASONE [Suspect]
     Active Substance: DEXAMETHASONE
     Indication: Product used for unknown indication
     Route: 065

REACTIONS (3)
  - Foetal death [Unknown]
  - Maternal exposure during pregnancy [Unknown]
  - Off label use [Unknown]
